FAERS Safety Report 7832201-4 (Version None)
Quarter: 2011Q4

REPORT INFORMATION
  Report Type: 
  Country: None (occurrence: None)
  Receive Date: 20111022
  Receipt Date: 20111008
  Transmission Date: 20120403
  Serious: Yes (Other)
  Sender: FDA-Public Use
  Company Number: US-BAYER-2011-043482

PATIENT
  Age: 45 Year
  Sex: Female
  Weight: 65.76 kg

DRUGS (5)
  1. CLARITIN [Concomitant]
     Dosage: UNK
     Dates: start: 20030117
  2. ZOLOFT [Concomitant]
     Dosage: UNK
     Dates: start: 20030129
  3. TAMOXIFEN CITRATE [Concomitant]
     Indication: NEOPLASM PROPHYLAXIS
     Dosage: UNK
     Dates: start: 20051201, end: 20101201
  4. YASMIN [Suspect]
     Indication: FIBROMA
     Dosage: UNK
     Dates: start: 20030101, end: 20030501
  5. NASONEX [Concomitant]
     Indication: SEASONAL ALLERGY
     Dosage: UNK
     Dates: start: 20060101

REACTIONS (4)
  - PAIN [None]
  - GALLBLADDER DISORDER [None]
  - CHOLELITHIASIS [None]
  - CHOLECYSTITIS CHRONIC [None]
